FAERS Safety Report 6164054-7 (Version None)
Quarter: 2009Q2

REPORT INFORMATION
  Report Type: 
  Country: None (occurrence: None)
  Receive Date: 20090420
  Receipt Date: 20090408
  Transmission Date: 20091009
  Serious: No
  Sender: FDA-Public Use
  Company Number: 2009-194661-NL

PATIENT
  Age: 38 Year
  Sex: Female

DRUGS (4)
  1. MIRTAZAPINE [Suspect]
     Indication: DEPRESSION
     Dosage: 15 MG QD ORAL
     Route: 048
     Dates: start: 20080908, end: 20081104
  2. DIAZEPAM [Concomitant]
  3. HYOSCINE [Concomitant]
  4. RISPERIDONE [Concomitant]

REACTIONS (2)
  - GRAND MAL CONVULSION [None]
  - HYPOTHERMIA [None]
